FAERS Safety Report 9955217 (Version 2)
Quarter: 2014Q2

REPORT INFORMATION
  Report Type: Spontaneous
  Country: IT (occurrence: IT)
  Receive Date: 20140304
  Receipt Date: 20140506
  Transmission Date: 20141212
  Serious: Yes (Hospitalization)
  Sender: FDA-Public Use
  Company Number: IT-TEVA-466319USA

PATIENT
  Age: 73 Year
  Sex: Female

DRUGS (4)
  1. LEVACT [Suspect]
     Indication: PLASMA CELL MYELOMA
     Dosage: CYCLIC
     Route: 041
     Dates: start: 20131230, end: 20140218
  2. ZANTAC [Concomitant]
     Dosage: UNKNOWN/D
     Route: 065
  3. SOLDESAM [Concomitant]
     Dosage: UNKNOWN/D
     Route: 065
  4. ZOFRAN                             /00955301/ [Concomitant]
     Dosage: UNKNOWN/D
     Route: 065

REACTIONS (6)
  - Paraesthesia [Recovering/Resolving]
  - Flushing [Recovering/Resolving]
  - Troponin T increased [Recovering/Resolving]
  - Throat tightness [Recovering/Resolving]
  - Nausea [Recovering/Resolving]
  - Hypotension [Recovering/Resolving]
